FAERS Safety Report 7600214-3 (Version None)
Quarter: 2011Q3

REPORT INFORMATION
  Report Type: 
  Country: None (occurrence: None)
  Receive Date: 20110711
  Receipt Date: 20110628
  Transmission Date: 20111222
  Serious: Yes (Hospitalization)
  Sender: FDA-Public Use
  Company Number: DE-BRISTOL-MYERS SQUIBB COMPANY-14658306

PATIENT
  Age: 45 Year
  Sex: Male
  Weight: 82 kg

DRUGS (16)
  1. ALIMTA [Suspect]
     Indication: NON-SMALL CELL LUNG CANCER STAGE IV
     Dosage: VIAL;ON DAY 1 EVERY 21 DAYS LAST DOSE:18MAY2009
     Route: 042
     Dates: start: 20090504
  2. METOCLOPRAMIDE [Concomitant]
     Indication: GASTRITIS PROPHYLAXIS
     Dates: start: 20090507
  3. FOLIC ACID [Concomitant]
     Indication: PROPHYLAXIS
     Dates: start: 20090418, end: 20090529
  4. CETUXIMAB [Suspect]
     Indication: NON-SMALL CELL LUNG CANCER STAGE IV
     Dosage: RECENT INFUSION ON 27MAY2009.ACTUAL DOSE(40ML)DURATION:24D.ON UNSPEIFIED DATE DOSE REDUCED TO HALF
     Route: 042
     Dates: start: 20090504
  5. CORTICOSTEROID [Concomitant]
     Indication: PROPHYLAXIS
     Dates: start: 20090525, end: 20090528
  6. IBUPROFEN [Concomitant]
     Indication: ANALGESIC THERAPY
     Dates: start: 20090409
  7. ANTIHISTAMINE NOS [Concomitant]
     Indication: PROPHYLAXIS
     Dates: start: 20090527, end: 20090527
  8. OXYGESIC [Concomitant]
     Indication: ANALGESIC THERAPY
     Dates: start: 20090418
  9. MOVIPREP [Concomitant]
     Indication: GASTRITIS PROPHYLAXIS
     Dates: start: 20090429
  10. VITAMIN B-12 [Concomitant]
     Indication: PROPHYLAXIS
     Dates: start: 20090419, end: 20090512
  11. OXYGESIC [Concomitant]
     Indication: CHEST PAIN
     Dates: start: 20090418
  12. NOVAMINSULFON [Concomitant]
     Indication: CHEST PAIN
     Dates: start: 20090418
  13. CISPLATIN [Suspect]
     Indication: NON-SMALL CELL LUNG CANCER STAGE IV
     Dosage: ON DAY 1 EVERY 21 DAYS DURATION:24D STARTED-04MAY09 RECENT INFUSION-27MAY09
     Route: 042
     Dates: start: 20090504
  14. NOVAMINSULFON [Concomitant]
     Indication: ANALGESIC THERAPY
     Dates: start: 20090418
  15. IBUPROFEN [Concomitant]
     Indication: CHEST PAIN
     Dates: start: 20090409
  16. PANTOPRAZOLE [Concomitant]
     Indication: GASTRITIS PROPHYLAXIS
     Dates: start: 20090408

REACTIONS (3)
  - OBSTRUCTION [None]
  - TUMOUR PAIN [None]
  - CYTOKINE RELEASE SYNDROME [None]
